APPROVED DRUG PRODUCT: CHLOROTHIAZIDE SODIUM
Active Ingredient: CHLOROTHIAZIDE SODIUM
Strength: EQ 500MG BASE/VIAL
Dosage Form/Route: INJECTABLE;INJECTION
Application: A218630 | Product #001 | TE Code: AP
Applicant: GLAND PHARMA LTD
Approved: Oct 3, 2024 | RLD: No | RS: No | Type: RX